FAERS Safety Report 19953142 (Version 1)
Quarter: 2021Q4

REPORT INFORMATION
  Report Type: Spontaneous
  Country: US (occurrence: US)
  Receive Date: 20211011
  Receipt Date: 20211011
  Transmission Date: 20220303
  Serious: No
  Sender: FDA-Public Use
  Company Number: None

PATIENT
  Age: 30 Year
  Sex: Male
  Weight: 90.72 kg

DRUGS (1)
  1. TALTZ [Suspect]
     Active Substance: IXEKIZUMAB
     Indication: Psoriasis
     Dosage: ?          OTHER FREQUENCY:WK12THENEV4WKS;
     Route: 058
     Dates: start: 202107

REACTIONS (3)
  - Pneumonia [None]
  - COVID-19 [None]
  - Therapy interrupted [None]
